FAERS Safety Report 8423780-7 (Version None)
Quarter: 2012Q2

REPORT INFORMATION
  Report Type: 
  Country: None (occurrence: None)
  Receive Date: 20120608
  Receipt Date: 20120531
  Transmission Date: 20120825
  Serious: Yes (Death)
  Sender: FDA-Public Use
  Company Number: US-VALEANT-2012VX002602

PATIENT
  Sex: Female

DRUGS (1)
  1. EFUDEX [Suspect]
     Route: 067

REACTIONS (2)
  - INCORRECT ROUTE OF DRUG ADMINISTRATION [None]
  - DEATH [None]
